FAERS Safety Report 6404795-7 (Version None)
Quarter: 2009Q4

REPORT INFORMATION
  Report Type: 
  Country: None (occurrence: None)
  Receive Date: 20091016
  Receipt Date: 20091005
  Transmission Date: 20100525
  Serious: Yes (Death, Other)
  Sender: FDA-Public Use
  Company Number: FR-GENENTECH-292120

PATIENT

DRUGS (2)
  1. MABTHERA [Suspect]
     Indication: CHRONIC ALLOGRAFT NEPHROPATHY
     Dosage: 375 MG/M2, 1/WEEK
     Route: 065
  2. MYCOPHENOLATE MOFETIL [Suspect]
     Indication: PROPHYLAXIS AGAINST TRANSPLANT REJECTION
     Route: 065

REACTIONS (7)
  - COMPLETED SUICIDE [None]
  - FIBROSIS [None]
  - GLOMERULONEPHRITIS [None]
  - GLOMERULONEPHRITIS MEMBRANOPROLIFERATIVE [None]
  - GRAFT LOSS [None]
  - PNEUMOCOCCAL INFECTION [None]
  - PNEUMOCYSTIS JIROVECI PNEUMONIA [None]
